FAERS Safety Report 10502654 (Version 3)
Quarter: 2014Q4

REPORT INFORMATION
  Report Type: Spontaneous
  Country: US (occurrence: None)
  Receive Date: 20141002
  Receipt Date: 20141229
  Transmission Date: 20150528
  Serious: Yes (Hospitalization)
  Sender: FDA-Public Use
  Company Number: US-000892N

PATIENT
  Age: 64 Year
  Sex: Female

DRUGS (19)
  1. MULTIVITAMIN /02358601/ [Concomitant]
  2. SOMA [Concomitant]
     Active Substance: CARISOPRODOL
  3. PRILOSEC [Concomitant]
     Active Substance: OMEPRAZOLE MAGNESIUM
  4. COCONUT OIL [Concomitant]
     Active Substance: COCONUT OIL
  5. POTASSIUM [Concomitant]
     Active Substance: POTASSIUM
  6. MAGNESIUM [Concomitant]
     Active Substance: MAGNESIUM
  7. TRAMADOL [Concomitant]
     Active Substance: TRAMADOL
  8. LOMOTIL [Concomitant]
     Active Substance: ATROPINE SULFATE\DIPHENOXYLATE HYDROCHLORIDE
  9. LOSARTAN POTASSIUM. [Concomitant]
     Active Substance: LOSARTAN POTASSIUM
  10. AMITRIPTYLINE [Concomitant]
     Active Substance: AMITRIPTYLINE
  11. COUMADIN / 00014802/ [Concomitant]
  12. NORCO [Concomitant]
     Active Substance: ACETAMINOPHEN\HYDROCODONE BITARTRATE
  13. CHOLESTYRAMINE. [Concomitant]
     Active Substance: CHOLESTYRAMINE
  14. DICYCLOMINE /0068601/ [Concomitant]
  15. HYDROCODONE [Concomitant]
     Active Substance: HYDROCODONE
  16. GATTEX [Suspect]
     Active Substance: TEDUGLUTIDE\WATER
     Indication: SHORT-BOWEL SYNDROME
     Dosage: (0.234 ML QD, STREN/VOLUM: 0.234 ML (FREQU: ONCE A DAY SUBCUTANEOUS)
     Route: 058
     Dates: start: 20131211
  17. CLONIDINE HCL [Concomitant]
     Active Substance: CLONIDINE HYDROCHLORIDE
  18. PROBIOTICS [Concomitant]
     Active Substance: PROBIOTICS NOS
  19. ACETAMINOPHEN W/HYDROCODONE [Concomitant]
     Active Substance: ACETAMINOPHEN\HYDROCODONE

REACTIONS (25)
  - Abasia [None]
  - Drug ineffective [None]
  - Platelet count decreased [None]
  - Dizziness [None]
  - Diarrhoea [None]
  - Fluid overload [None]
  - Abdominal distension [None]
  - Aspartate aminotransferase increased [None]
  - Syncope [None]
  - Carbon dioxide increased [None]
  - Alanine aminotransferase increased [None]
  - Fatigue [None]
  - Injection site haemorrhage [None]
  - Hypotension [None]
  - Protein total abnormal [None]
  - Nausea [None]
  - Flatulence [None]
  - Hypertension [None]
  - Vomiting [None]
  - Dyspnoea [None]
  - Asthenia [None]
  - Condition aggravated [None]
  - Prealbumin decreased [None]
  - Abdominal pain [None]
  - Drug dose omission [None]

NARRATIVE: CASE EVENT DATE: 20131221
